FAERS Safety Report 9157211 (Version 1)
Quarter: 2013Q1

REPORT INFORMATION
  Report Type: Spontaneous
  Country: GB (occurrence: GB)
  Receive Date: 20130312
  Receipt Date: 20130312
  Transmission Date: 20140127
  Serious: Yes (Other)
  Sender: FDA-Public Use
  Company Number: GB-MYLANLABS-2013S1004687

PATIENT
  Age: 64 Year
  Sex: Male

DRUGS (5)
  1. LEVETIRACETAM [Suspect]
     Indication: EPILEPSY
  2. MYSOLINE [Suspect]
     Indication: EPILEPSY
  3. PHENYTOIN [Suspect]
     Indication: EPILEPSY
  4. CLOBAZAM [Concomitant]
     Indication: PRODUCT USED FOR UNKNOWN INDICATION
  5. CLOBAZAM [Concomitant]
     Indication: PRODUCT USED FOR UNKNOWN INDICATION

REACTIONS (5)
  - Hypertension [Unknown]
  - Dizziness [Unknown]
  - Headache [Unknown]
  - Cardiac disorder [Unknown]
  - Toxicity to various agents [Unknown]
